FAERS Safety Report 6436840-7 (Version None)
Quarter: 2009Q4

REPORT INFORMATION
  Report Type: 
  Country: None (occurrence: None)
  Receive Date: 20091111
  Receipt Date: 20090916
  Transmission Date: 20100525
  Serious: No
  Sender: FDA-Public Use
  Company Number: US-ALLERGAN-0912973US

PATIENT
  Sex: Female

DRUGS (4)
  1. SANCTURA XR [Suspect]
     Indication: HYPERTONIC BLADDER
     Dosage: UNK
     Route: 048
     Dates: start: 20090101
  2. ANTACID TAB [Suspect]
     Indication: GASTROOESOPHAGEAL REFLUX DISEASE
  3. PREVACID [Concomitant]
     Indication: GASTROOESOPHAGEAL REFLUX DISEASE
  4. DICYCLOMINE [Concomitant]
     Indication: IRRITABLE BOWEL SYNDROME

REACTIONS (3)
  - GASTROOESOPHAGEAL REFLUX DISEASE [None]
  - NAUSEA [None]
  - THERAPEUTIC RESPONSE DECREASED [None]
